FAERS Safety Report 4463712-X (Version None)
Quarter: 2004Q3

REPORT INFORMATION
  Report Type: 
  Country: None (occurrence: None)
  Receive Date: 20040929
  Receipt Date: 20040915
  Transmission Date: 20050211
  Serious: Yes (Other)
  Sender: FDA-Public Use
  Company Number: FR_040504190

PATIENT
  Age: 82 Year
  Sex: Female
  Weight: 70 kg

DRUGS (3)
  1. PERGOLIDE MESYLATE [Suspect]
     Indication: PARKINSON'S DISEASE
     Dosage: 3 MG/1 DAY
     Dates: start: 20000101, end: 20040501
  2. MODOPAR [Concomitant]
  3. BISOPROLOL FUMARATE [Concomitant]

REACTIONS (3)
  - OEDEMA [None]
  - RENAL FAILURE ACUTE [None]
  - WEIGHT INCREASED [None]
